FAERS Safety Report 12385312 (Version 1)
Quarter: 2016Q2

REPORT INFORMATION
  Report Type: Spontaneous
  Country: US (occurrence: US)
  Receive Date: 20160519
  Receipt Date: 20160519
  Transmission Date: 20160815
  Serious: No
  Sender: FDA-Public Use
  Company Number: US-009507513-1605USA003385

PATIENT
  Age: 37 Year
  Sex: Female

DRUGS (2)
  1. BELSOMRA [Suspect]
     Active Substance: SUVOREXANT
     Dosage: 20 MG, QD
     Route: 048
     Dates: start: 20160429, end: 20160430
  2. BELSOMRA [Suspect]
     Active Substance: SUVOREXANT
     Indication: INSOMNIA
     Dosage: 20 MG, QD
     Route: 048
     Dates: end: 201604

REACTIONS (4)
  - Nightmare [Recovering/Resolving]
  - Medication error [Unknown]
  - Sleep paralysis [Recovering/Resolving]
  - Sleep terror [Recovering/Resolving]

NARRATIVE: CASE EVENT DATE: 20160430
